FAERS Safety Report 5533244-6 (Version None)
Quarter: 2007Q4

REPORT INFORMATION
  Report Type: 
  Country: None (occurrence: None)
  Receive Date: 20071204
  Receipt Date: 20071128
  Transmission Date: 20080405
  Serious: Yes (Hospitalization)
  Sender: FDA-Public Use
  Company Number: A0696322A

PATIENT
  Age: 69 Year
  Sex: Female

DRUGS (10)
  1. AVANDIA [Suspect]
     Route: 048
     Dates: start: 20061001, end: 20061030
  2. COREG [Concomitant]
  3. METFORMIN HCL [Concomitant]
  4. ENALAPRIL MALEATE [Concomitant]
  5. FUROSEMIDE [Concomitant]
  6. IBUPROFEN [Concomitant]
  7. OMEPRAZOLE [Concomitant]
  8. LIPITOR [Concomitant]
  9. ASPIRIN [Concomitant]
  10. WATER PILL [Concomitant]

REACTIONS (2)
  - CARDIAC DISORDER [None]
  - QUALITY OF LIFE DECREASED [None]
